FAERS Safety Report 11417207 (Version 1)
Quarter: 2015Q3

REPORT INFORMATION
  Report Type: Spontaneous
  Country: FR (occurrence: FR)
  Receive Date: 20150825
  Receipt Date: 20150825
  Transmission Date: 20151125
  Serious: Yes (Other)
  Sender: FDA-Public Use
  Company Number: FR-TEVA-587258ISR

PATIENT
  Age: 23 Year
  Sex: Female
  Weight: 49 kg

DRUGS (3)
  1. ANDROCUR 50 MG [Concomitant]
     Dates: start: 20150724
  2. CETIRIZINE [Suspect]
     Active Substance: CETIRIZINE HYDROCHLORIDE
     Indication: URTICARIA
     Dosage: 1 DOSAGE FORMS DAILY; ONE UNIQUE INTAKE
     Route: 048
     Dates: start: 20150726, end: 20150726
  3. OESCLIM 50 MICROGRAM/ 24 HOURS [Concomitant]
     Route: 062
     Dates: start: 20150724

REACTIONS (13)
  - Nausea [Recovered/Resolved]
  - Feeling hot [Unknown]
  - Abdominal pain [Recovering/Resolving]
  - Headache [Recovering/Resolving]
  - Abdominal distension [Recovering/Resolving]
  - Middle insomnia [Unknown]
  - Asthenia [Recovering/Resolving]
  - Fatigue [Recovering/Resolving]
  - Insomnia [Recovering/Resolving]
  - Diarrhoea [Recovering/Resolving]
  - Decreased appetite [Unknown]
  - Hyperacusis [Unknown]
  - Feeling cold [Unknown]

NARRATIVE: CASE EVENT DATE: 20150726
